FAERS Safety Report 4264498-4 (Version None)
Quarter: 2004Q1

REPORT INFORMATION
  Report Type: 
  Country: None (occurrence: None)
  Receive Date: 20040106
  Receipt Date: 20040106
  Transmission Date: 20041129
  Serious: Yes (Death)
  Sender: FDA-Public Use
  Company Number: None

PATIENT
  Sex: Female
  Weight: 25.4 kg

DRUGS (6)
  1. CYTARABINE [Suspect]
     Indication: LEUKAEMIA
     Dosage: 2.7 GM EVERY 12H INTRAVENOUS
     Route: 042
     Dates: start: 20031210, end: 20031218
  2. PEG-L-ASPARAGINAS [Suspect]
     Indication: LEUKAEMIA
     Dosage: 2250 IU ONCE INTRAMUSCULAR
     Route: 030
     Dates: start: 20031218, end: 20031218
  3. FILGRASTIM [Concomitant]
  4. TYLENOL [Concomitant]
  5. BACTRIM [Concomitant]
  6. ZANTAC [Concomitant]

REACTIONS (5)
  - BACTERIAL SEPSIS [None]
  - MULTI-ORGAN FAILURE [None]
  - NEUTROPENIA [None]
  - RESPIRATORY DISTRESS [None]
  - TACHYPNOEA [None]
